FAERS Safety Report 4718172-8 (Version None)
Quarter: 2005Q3

REPORT INFORMATION
  Report Type: 
  Country: None (occurrence: None)
  Receive Date: 20050720
  Receipt Date: 20050627
  Transmission Date: 20060218
  Serious: Yes (Death)
  Sender: FDA-Public Use
  Company Number: ES-BRISTOL-MYERS SQUIBB COMPANY-13018205

PATIENT
  Age: 21 Day
  Sex: Female
  Weight: 3 kg

DRUGS (8)
  1. ATAZANAVIR [Suspect]
     Dosage: THERAPY DISCONTINUED ON 06-SEP-2004 AND RE-STARTED ON 06-OCT-2004.
     Route: 064
     Dates: start: 20030203, end: 20050408
  2. TENOFOVIR [Concomitant]
     Route: 064
     Dates: start: 20030203, end: 20040906
  3. ZIDOVUDINE [Concomitant]
     Route: 064
     Dates: start: 20030203, end: 20050408
  4. DIDANOSINE [Concomitant]
     Route: 064
     Dates: start: 20040906, end: 20050408
  5. NELFINAVIR [Concomitant]
     Route: 064
     Dates: start: 20040906, end: 20041006
  6. ZIDOVUDINE [Concomitant]
     Dosage: RECEIVED POST DELIVERY
     Dates: start: 20050101
  7. VITAMIN D3 [Concomitant]
  8. RANITIDINE [Concomitant]
     Dosage: GIVEN DRUG PREGNANCY AND DELIVERY
     Route: 064

REACTIONS (8)
  - CARDIO-RESPIRATORY ARREST [None]
  - DRUG EXPOSURE DURING PREGNANCY [None]
  - HIV INFECTION [None]
  - NEONATAL DISORDER [None]
  - PNEUMOCYSTIS JIROVECI PNEUMONIA [None]
  - PREMATURE BABY [None]
  - PREMATURE RUPTURE OF MEMBRANES [None]
  - SUDDEN INFANT DEATH SYNDROME [None]
